FAERS Safety Report 12009330 (Version 1)
Quarter: 2016Q1

REPORT INFORMATION
  Report Type: Spontaneous
  Country: IT (occurrence: IT)
  Receive Date: 20160205
  Receipt Date: 20160205
  Transmission Date: 20160526
  Serious: Yes (Other)
  Sender: FDA-Public Use
  Company Number: IT-ACCORD-037384

PATIENT
  Age: 51 Year
  Sex: Female

DRUGS (6)
  1. EUTIROX [Concomitant]
     Active Substance: LEVOTHYROXINE SODIUM
     Route: 048
  2. LYRICA [Concomitant]
     Active Substance: PREGABALIN
  3. CARDIOASPIRIN [Concomitant]
     Active Substance: ASPIRIN
     Route: 048
  4. TAVOR (LORAZEPAM) [Concomitant]
     Active Substance: LORAZEPAM
  5. ESCITALOPRAM [Suspect]
     Active Substance: ESCITALOPRAM OXALATE
     Indication: DEPRESSION
     Dosage: DOSE REDUCED TO 10MG
  6. SURMONTIL [Concomitant]
     Active Substance: TRIMIPRAMINE MALEATE

REACTIONS (1)
  - Clonus [Recovered/Resolved]

NARRATIVE: CASE EVENT DATE: 20160111
